FAERS Safety Report 23743115 (Version 2)
Quarter: 2024Q2

REPORT INFORMATION
  Report Type: Report from Study
  Country: US (occurrence: US)
  Receive Date: 20240415
  Receipt Date: 20240511
  Transmission Date: 20240716
  Serious: Yes (Other)
  Sender: FDA-Public Use
  Company Number: US-ABBVIE-5719964

PATIENT
  Sex: Female
  Weight: 97 kg

DRUGS (3)
  1. BOTOX [Suspect]
     Active Substance: ONABOTULINUMTOXINA
     Indication: Migraine without aura
     Dosage: TIME INTERVAL: AS NECESSARY
     Route: 065
     Dates: start: 2014, end: 2014
  2. BOTOX [Suspect]
     Active Substance: ONABOTULINUMTOXINA
     Indication: Migraine without aura
     Dosage: TIME INTERVAL: AS NECESSARY
     Route: 065
     Dates: start: 20240213, end: 20240213
  3. BOTOX [Suspect]
     Active Substance: ONABOTULINUMTOXINA
     Indication: Migraine without aura
     Dosage: TIME INTERVAL: AS NECESSARY
     Route: 065
     Dates: start: 20150112, end: 20150112

REACTIONS (1)
  - Surgery [Unknown]

NARRATIVE: CASE EVENT DATE: 20240101
